FAERS Safety Report 22338466 (Version 1)
Quarter: 2023Q2

REPORT INFORMATION
  Report Type: Spontaneous
  Country: US (occurrence: None)
  Receive Date: 20230518
  Receipt Date: 20230518
  Transmission Date: 20230721
  Serious: No
  Sender: FDA-Public Use
  Company Number: US-ROCHE-3254225

PATIENT
  Age: 73 Year
  Sex: Female
  Weight: 68.1 kg

DRUGS (3)
  1. ACTEMRA [Suspect]
     Active Substance: TOCILIZUMAB
     Indication: Myalgia
     Route: 058
  2. ACTEMRA [Suspect]
     Active Substance: TOCILIZUMAB
  3. PREDNISONE [Concomitant]
     Active Substance: PREDNISONE
     Indication: Myalgia
     Dosage: IS CURRENTLY ON A TAPERING DOSE WITH THE ABOVE DOSE THE CURRENT DOSE
     Route: 048
     Dates: start: 202205

REACTIONS (6)
  - Device defective [Unknown]
  - Incorrect dose administered [Unknown]
  - Device malfunction [Unknown]
  - Product dose omission issue [Unknown]
  - Pain [Not Recovered/Not Resolved]
  - Off label use [Unknown]

NARRATIVE: CASE EVENT DATE: 20221220
